FAERS Safety Report 4647648-7 (Version None)
Quarter: 2005Q2

REPORT INFORMATION
  Report Type: 
  Country: None (occurrence: None)
  Receive Date: 20050427
  Receipt Date: 20050427
  Transmission Date: 20051028
  Serious: Yes (Hospitalization)
  Sender: FDA-Public Use
  Company Number: None

PATIENT
  Sex: Female
  Weight: 63 kg

DRUGS (9)
  1. DESMOPRESSIN [Suspect]
     Indication: URINARY INCONTINENCE
  2. MIRTAZAPINE [Concomitant]
  3. PROTONIX [Concomitant]
  4. ASPIRIN [Concomitant]
  5. COZAAR [Concomitant]
  6. REMINYL [Concomitant]
  7. XANAX [Concomitant]
  8. IMODIUM [Concomitant]
  9. ISOSORBIDE DINITRATE [Concomitant]

REACTIONS (7)
  - ASTHENIA [None]
  - BALANCE DISORDER [None]
  - CONFUSIONAL STATE [None]
  - FALL [None]
  - HYPONATRAEMIA [None]
  - NAUSEA [None]
  - VOMITING [None]
